FAERS Safety Report 5298750-0 (Version None)
Quarter: 2007Q2

REPORT INFORMATION
  Report Type: 
  Country: None (occurrence: None)
  Receive Date: 20070417
  Receipt Date: 20070410
  Transmission Date: 20071010
  Serious: Yes (Other)
  Sender: FDA-Public Use
  Company Number: ES-JNJFOC-20070402058

PATIENT
  Sex: Male
  Weight: 28 kg

DRUGS (2)
  1. CONCERTA [Suspect]
     Indication: ATTENTION DEFICIT/HYPERACTIVITY DISORDER
     Route: 048
  2. DEPAKENE [Concomitant]
     Indication: PARTIAL SEIZURES
     Route: 065

REACTIONS (5)
  - ANOREXIA [None]
  - ATTENTION DEFICIT/HYPERACTIVITY DISORDER [None]
  - CONDITION AGGRAVATED [None]
  - GROWTH RETARDATION [None]
  - WEIGHT GAIN POOR [None]
